FAERS Safety Report 6584336-4 (Version None)
Quarter: 2010Q1

REPORT INFORMATION
  Report Type: 
  Country: None (occurrence: None)
  Receive Date: 20100216
  Receipt Date: 20100202
  Transmission Date: 20100710
  Serious: No
  Sender: FDA-Public Use
  Company Number: US-ABBOTT-10P-163-0623672-00

PATIENT
  Sex: Female
  Weight: 89.438 kg

DRUGS (7)
  1. SIMCOR [Suspect]
     Indication: BLOOD CHOLESTEROL INCREASED
     Dates: start: 20100101
  2. LYRICA [Concomitant]
     Indication: DRUG USE FOR UNKNOWN INDICATION
  3. CELEBREX [Concomitant]
     Indication: DRUG USE FOR UNKNOWN INDICATION
  4. CYMBALTA [Concomitant]
     Indication: DRUG USE FOR UNKNOWN INDICATION
  5. VICODIN [Concomitant]
     Indication: DRUG USE FOR UNKNOWN INDICATION
  6. AVONEX [Concomitant]
     Indication: DRUG USE FOR UNKNOWN INDICATION
  7. CYCLOBENZAPRINE [Concomitant]
     Indication: DRUG USE FOR UNKNOWN INDICATION

REACTIONS (1)
  - FLUSHING [None]
